FAERS Safety Report 12879839 (Version 6)
Quarter: 2017Q4

REPORT INFORMATION
  Report Type: Report from Study
  Country: US (occurrence: US)
  Receive Date: 20161025
  Receipt Date: 20171027
  Transmission Date: 20180320
  Serious: Yes (Other)
  Sender: FDA-Public Use
  Company Number: PHHY2016US048057

PATIENT
  Age: 39 Year
  Sex: Female

DRUGS (3)
  1. NEXPLANON [Concomitant]
     Active Substance: ETONOGESTREL
     Indication: CONTRACEPTION
     Dosage: UNK
     Route: 065
     Dates: start: 20160314
  2. ALBUTEROL. [Concomitant]
     Active Substance: ALBUTEROL
     Indication: WHEEZING
     Dosage: UNK
     Route: 065
     Dates: start: 20170113
  3. GILENYA [Suspect]
     Active Substance: FINGOLIMOD HYDROCHLORIDE
     Indication: MULTIPLE SCLEROSIS
     Dosage: UNK, QD
     Route: 048

REACTIONS (17)
  - Ulcerative keratitis [Recovered/Resolved]
  - Optic neuritis [Recovered/Resolved]
  - Ulcerative keratitis [Recovered/Resolved]
  - Bronchitis [Recovered/Resolved]
  - Oropharyngeal pain [Recovered/Resolved]
  - Vulvovaginal candidiasis [Recovered/Resolved]
  - Alopecia [Unknown]
  - Bronchitis [Unknown]
  - Bradycardia [Recovered/Resolved]
  - Nasal mucosal disorder [Recovered/Resolved]
  - Viral upper respiratory tract infection [Unknown]
  - Multiple sclerosis relapse [Recovered/Resolved]
  - Optic neuritis [Recovered/Resolved]
  - Keratitis [Recovered/Resolved]
  - Sinusitis [Recovered/Resolved]
  - Sinus congestion [Unknown]
  - Sleep apnoea syndrome [Unknown]

NARRATIVE: CASE EVENT DATE: 20160310
